FAERS Safety Report 23682823 (Version 4)
Quarter: 2024Q2

REPORT INFORMATION
  Report Type: Report from Study
  Country: NL (occurrence: NL)
  Receive Date: 20240328
  Receipt Date: 20240605
  Transmission Date: 20240715
  Serious: Yes (Other)
  Sender: FDA-Public Use
  Company Number: NL-ARBOR PHARMACEUTICALS, LLC-NL-2024AZR000316

PATIENT
  Age: 67 Year
  Sex: Male
  Weight: 80.998 kg

DRUGS (4)
  1. TRIPTODUR [Suspect]
     Active Substance: TRIPTORELIN
     Indication: Prostate cancer
     Dosage: 0.125 MILLIGRAM(S) (22.5 MILLIGRAM(S), 1 IN 6 MONTH)
     Route: 030
     Dates: start: 20230823, end: 20230823
  2. TRIPTODUR [Suspect]
     Active Substance: TRIPTORELIN
     Dosage: 0.125 MILLIGRAM(S) (22.5 MILLIGRAM(S), 1 IN 6 MONTH)
     Route: 030
     Dates: start: 20240222, end: 20240222
  3. TRIPTODUR [Suspect]
     Active Substance: TRIPTORELIN
  4. TRIPTODUR [Suspect]
     Active Substance: TRIPTORELIN

REACTIONS (4)
  - Arrhythmia [Unknown]
  - Fatigue [Recovering/Resolving]
  - Depressed mood [Unknown]
  - Hot flush [Unknown]

NARRATIVE: CASE EVENT DATE: 20230901
